FAERS Safety Report 22608851 (Version 6)
Quarter: 2024Q1

REPORT INFORMATION
  Report Type: Spontaneous
  Country: FR (occurrence: FR)
  Receive Date: 20230616
  Receipt Date: 20240328
  Transmission Date: 20240410
  Serious: Yes (Other)
  Sender: FDA-Public Use
  Company Number: FR-002147023-NVSC2023FR102098

PATIENT
  Sex: Female
  Weight: 69 kg

DRUGS (62)
  1. STELARA [Suspect]
     Active Substance: USTEKINUMAB
     Indication: Ankylosing spondylitis
     Dosage: UNK
     Route: 065
     Dates: start: 20181008, end: 20181026
  2. COSENTYX [Suspect]
     Active Substance: SECUKINUMAB
     Indication: Product used for unknown indication
     Dosage: 300 MG, QW (ONCE A WEEK 5 TIMES THEN ONCE A MONTH FOR THE NEXT 3 MONTHS)
     Route: 058
     Dates: start: 20170214
  3. COSENTYX [Suspect]
     Active Substance: SECUKINUMAB
     Dosage: 300 MG, QMO (FOR THE NEXT 6 MONTHS)
     Route: 065
     Dates: start: 20170304
  4. COSENTYX [Suspect]
     Active Substance: SECUKINUMAB
     Dosage: 300 MG, QMO
     Route: 058
     Dates: start: 20180319, end: 20180808
  5. ACETAMINOPHEN\OPIUM [Concomitant]
     Active Substance: ACETAMINOPHEN\OPIUM
     Indication: Symptomatic treatment
     Dosage: UNK
     Route: 065
     Dates: start: 20160204
  6. CYANOCOBALAMIN [Concomitant]
     Active Substance: CYANOCOBALAMIN
     Indication: Product used for unknown indication
     Dosage: UNK
     Route: 065
  7. FOLIC ACID [Concomitant]
     Active Substance: FOLIC ACID
     Indication: Product used for unknown indication
     Dosage: 1 DOSAGE FORM (5 DAYS/WEEK)
     Route: 065
     Dates: start: 20160808
  8. FOLIC ACID [Concomitant]
     Active Substance: FOLIC ACID
     Dosage: 5 MG, QW, 1 TABLET ORALLY WEEKLY (WEDNESDAY) FOR 4 MONTHS
     Route: 065
     Dates: start: 20230901, end: 20231129
  9. NABUMETONE [Concomitant]
     Active Substance: NABUMETONE
     Indication: Symptomatic treatment
     Dosage: UNK
     Route: 065
     Dates: start: 20161213
  10. CERTOLIZUMAB [Concomitant]
     Active Substance: CERTOLIZUMAB
     Indication: Product used for unknown indication
     Route: 065
  11. NAPROXEN [Concomitant]
     Active Substance: NAPROXEN
     Indication: Product used for unknown indication
     Dosage: UNK (1 TO 2 SUPPOSITORIES PER DAY)
     Route: 065
     Dates: start: 20160204
  12. FOLIC ACID [Concomitant]
     Active Substance: FOLIC ACID
     Indication: Product used for unknown indication
     Dosage: UNK
     Route: 065
  13. PREDNISONE [Concomitant]
     Active Substance: PREDNISONE
     Indication: Pain in extremity
     Dosage: 1 DOSAGE FORM, QD, 1 TABLET ORALLY IN THE MORNING FOR 4 MONTHS
     Route: 065
     Dates: start: 20230901
  14. PREDNISONE [Concomitant]
     Active Substance: PREDNISONE
     Dosage: UNK
     Route: 065
     Dates: end: 20181026
  15. PREDNISONE [Concomitant]
     Active Substance: PREDNISONE
     Dosage: 5 MG, QD
     Route: 065
  16. PREDNISONE [Concomitant]
     Active Substance: PREDNISONE
     Dosage: 1 DOSAGE FORM, QD, 1 TABLET ORALLY IN THE MORNING FOR 1 MONTH
     Route: 065
     Dates: start: 20230901
  17. ESOMEPRAZOLE [Concomitant]
     Active Substance: ESOMEPRAZOLE
     Indication: Product used for unknown indication
     Dosage: 1 DOSAGE FORM, QD (40)
     Route: 065
     Dates: start: 20160204
  18. ESOMEPRAZOLE [Concomitant]
     Active Substance: ESOMEPRAZOLE
     Dosage: UNK (40)
     Route: 065
     Dates: start: 20170304
  19. DAFALGAN [Concomitant]
     Active Substance: ACETAMINOPHEN
     Indication: Product used for unknown indication
     Dosage: UNK, PRN
     Route: 065
     Dates: start: 20180808
  20. DAFALGAN [Concomitant]
     Active Substance: ACETAMINOPHEN
     Dosage: UNK
     Route: 065
     Dates: start: 20181211
  21. DAFALGAN [Concomitant]
     Active Substance: ACETAMINOPHEN
     Dosage: UNK, PRN
     Route: 065
     Dates: start: 20170721
  22. ACETAMINOPHEN\CODEINE PHOSPHATE [Concomitant]
     Active Substance: ACETAMINOPHEN\CODEINE PHOSPHATE
     Indication: Product used for unknown indication
     Dosage: UNK, PRN
     Route: 065
     Dates: start: 20170304
  23. SIMPONI [Concomitant]
     Active Substance: GOLIMUMAB
     Indication: Product used for unknown indication
     Dosage: 50 MG, QMO
     Route: 058
     Dates: start: 20160204
  24. DOLIPRANE [Concomitant]
     Active Substance: ACETAMINOPHEN
     Indication: Symptomatic treatment
     Dosage: UNK
     Route: 065
     Dates: start: 20161213
  25. DOLIPRANE [Concomitant]
     Active Substance: ACETAMINOPHEN
     Dosage: 500 MG, TID
     Route: 065
  26. METHOTREXATE [Concomitant]
     Active Substance: METHOTREXATE
     Indication: Product used for unknown indication
     Dosage: 20 MG, QW
     Route: 065
     Dates: start: 20160808
  27. METHOTREXATE [Concomitant]
     Active Substance: METHOTREXATE
     Dosage: UNK, QW (15 TO 20 MG/WEEK)
     Route: 058
     Dates: start: 201708, end: 201710
  28. METHOTREXATE [Concomitant]
     Active Substance: METHOTREXATE
     Dosage: 15 MG, QW (PEN)
     Route: 058
  29. CODEINE [Concomitant]
     Active Substance: CODEINE
     Indication: Product used for unknown indication
     Dosage: UNK, PRN
     Route: 065
     Dates: start: 20170721
  30. CODEINE [Concomitant]
     Active Substance: CODEINE
     Dosage: UNK
     Route: 065
     Dates: start: 20181211
  31. CODEINE [Concomitant]
     Active Substance: CODEINE
     Dosage: UNK
     Route: 065
  32. FLUOXETINE [Concomitant]
     Active Substance: FLUOXETINE HYDROCHLORIDE
     Indication: Product used for unknown indication
     Dosage: UNK
     Route: 065
  33. TRAMADOL [Concomitant]
     Active Substance: TRAMADOL\TRAMADOL HYDROCHLORIDE
     Indication: Product used for unknown indication
     Dosage: UNK
     Route: 065
  34. OMEPRAZOLE [Concomitant]
     Active Substance: OMEPRAZOLE
     Indication: Product used for unknown indication
     Dosage: 40 MG, QD
  35. METHOTREXATE [Concomitant]
     Active Substance: METHOTREXATE
     Indication: Product used for unknown indication
     Dosage: 1 DOSAGE FORM, QW, 1 SYRINGE  SUBCUTANOUSLY ONCE A WEEK (MONDAY) FOR 4 MONTHS
     Route: 065
     Dates: start: 20230901
  36. DAFALGAN CODEINE [Concomitant]
     Active Substance: ACETAMINOPHEN\CODEINE PHOSPHATE
     Indication: Product used for unknown indication
     Dosage: 1 DOSAGE FORM, TID, (1 TABLETS ORALLY 3 TIMES A DAY IF PAIN FOR 4 MONTHS, CODEINE PHOSPATE 30 MG PLU
     Route: 065
     Dates: start: 20230901
  37. NIFEDIPINE [Concomitant]
     Active Substance: NIFEDIPINE
     Indication: Raynaud^s phenomenon
     Dosage: 30 MG, BID, 1 TABLET ORALLY TWICE A DAY (MORNING AND EVENING) FOR 4 MONTHS
     Dates: start: 20230901
  38. HYDROXYCHLOROQUINE DIPHOSPHATE [Concomitant]
     Active Substance: HYDROXYCHLOROQUINE DIPHOSPHATE
     Indication: Product used for unknown indication
     Dosage: 400 MG, QD
  39. HYDROXYCHLOROQUINE DIPHOSPHATE [Concomitant]
     Active Substance: HYDROXYCHLOROQUINE DIPHOSPHATE
     Dosage: UNK, 1 COMPRIME PAR VOIE  ORALE LE SOIR FOR 1 MONTH
     Dates: start: 20231013
  40. HYDROXYCHLOROQUINE DIPHOSPHATE [Concomitant]
     Active Substance: HYDROXYCHLOROQUINE DIPHOSPHATE
     Route: 065
     Dates: start: 2021
  41. BETAMETHASONE DIPROPIONATE\BETAMETHASONE SODIUM PHOSPHATE [Concomitant]
     Active Substance: BETAMETHASONE DIPROPIONATE\BETAMETHASONE SODIUM PHOSPHATE
     Indication: Product used for unknown indication
     Dosage: UNK
     Dates: start: 20231013, end: 20231013
  42. BETAMETHASONE DIPROPIONATE\BETAMETHASONE SODIUM PHOSPHATE [Concomitant]
     Active Substance: BETAMETHASONE DIPROPIONATE\BETAMETHASONE SODIUM PHOSPHATE
     Dosage: UNK
  43. ACUPAN [Concomitant]
     Active Substance: NEFOPAM HYDROCHLORIDE
     Indication: Product used for unknown indication
     Dosage: UNK
     Dates: start: 20231013, end: 20231111
  44. HYDROXYCHLOROQUINE SULFATE [Concomitant]
     Active Substance: HYDROXYCHLOROQUINE SULFATE
     Indication: Product used for unknown indication
     Dosage: 1 DOSAGE FORM, (1 TABLET ORALLY IN THE EVENING FOR 4 MONTHS)
     Route: 048
     Dates: start: 20230901
  45. PARACETAMOL RPG [Concomitant]
     Indication: Product used for unknown indication
     Dosage: 1 DOSAGE FORM, BID, 1 TABLET ORALLY TWICE A  DAY IF PAIN FOR 4 MONTHS
     Dates: start: 20230901
  46. PARACETAMOL RPG [Concomitant]
     Dosage: 1 DOSAGE FORM, BID, (1 TABLET ORALLY 2 TIMES  A DAY IF PAIN FOR 1 MONTH)
     Dates: start: 20231013
  47. CORTISONE [Concomitant]
     Active Substance: CORTISONE
     Indication: Product used for unknown indication
     Dosage: 20 MG, QD
  48. ANETHOLTRITHION [Concomitant]
     Active Substance: ANETHOLTRITHION
     Indication: Product used for unknown indication
     Dosage: 1 DOSAGE FORM, BID, 1 TABLET ORALLY TWICE A  DAY (MORNING AND EVENING) FOR 4 MONTHS
     Route: 048
     Dates: start: 20230901
  49. ANETHOLTRITHION [Concomitant]
     Active Substance: ANETHOLTRITHION
     Dosage: 1 DOSAGE FORM, BID, 1 TABLET ORALLY IN THE  MORNING AND EVENING FOR 4 MONTHS
     Route: 048
     Dates: start: 20231013
  50. METFORMIN HYDROCHLORIDE [Concomitant]
     Active Substance: METFORMIN HYDROCHLORIDE
     Indication: Product used for unknown indication
     Dosage: 1 DOSAGE FORM, TID, (ACUPAN, 1 AMPOULE ORALLY 3  TIMES A DAY IF PAIN FOR 4  MONTHS)
     Dates: start: 20230901, end: 20230930
  51. ESOMEPRAZOLE [Concomitant]
     Active Substance: ESOMEPRAZOLE
     Indication: Product used for unknown indication
     Dosage: 1 DOSAGE FORM, QD (40)
     Dates: start: 20160204
  52. ESOMEPRAZOLE [Concomitant]
     Active Substance: ESOMEPRAZOLE
     Dosage: UNK (40)
     Dates: start: 20170304
  53. ESOMEPRAZOLE [Concomitant]
     Active Substance: ESOMEPRAZOLE
     Dosage: 40 MG, QD
  54. ESOMEPRAZOLE [Concomitant]
     Active Substance: ESOMEPRAZOLE
     Dosage: 1 DOSAGE FORM, QD (40)
     Dates: start: 20160204
  55. ESOMEPRAZOLE SODIUM [Concomitant]
     Active Substance: ESOMEPRAZOLE SODIUM
     Indication: Product used for unknown indication
     Dosage: 1 DOSAGE FORM, QD, 1 CAPSULE ORALLY IN THE  EVENING FOR 1 MONTHS
     Route: 048
     Dates: start: 20231013
  56. ESOMEPRAZOLE SODIUM [Concomitant]
     Active Substance: ESOMEPRAZOLE SODIUM
     Dosage: 1 DOSAGE FORM, QD, 1 CAPSULE ORALLY IN THE EVENING, FOR 4 MONTHS
     Dates: start: 20230901
  57. ANETHOLTRITHION [Concomitant]
     Active Substance: ANETHOLTRITHION
     Indication: Product used for unknown indication
     Route: 065
  58. FERINJECT [Concomitant]
     Active Substance: FERRIC CARBOXYMALTOSE
     Indication: Product used for unknown indication
     Route: 065
  59. PREDNISOLONE [Concomitant]
     Active Substance: PREDNISOLONE
     Indication: Product used for unknown indication
     Dosage: 5 MG, QD
     Route: 065
  60. USTEKINUMAB [Concomitant]
     Active Substance: USTEKINUMAB
     Indication: Product used for unknown indication
     Route: 065
     Dates: start: 2018
  61. ALPRAZOLAM [Concomitant]
     Active Substance: ALPRAZOLAM
     Indication: Anxiety
     Dosage: UNK (5 MG ON DEMAND (SOMETIMES 2/DAY - EVERY WEEK, HALF THE WEEK)
     Route: 065
  62. VENLAFAXINE [Concomitant]
     Active Substance: VENLAFAXINE HYDROCHLORIDE
     Indication: Product used for unknown indication
     Dosage: 75 MG, BID (VENLAFOXINE FOR 1 YEAR)
     Route: 065

REACTIONS (32)
  - Systemic lupus erythematosus [Unknown]
  - Myelodysplastic syndrome [Unknown]
  - Depression suicidal [Unknown]
  - Uveitis [Unknown]
  - Peripheral ischaemia [Not Recovered/Not Resolved]
  - Gastrooesophageal reflux disease [Unknown]
  - Pain [Unknown]
  - Gastrointestinal disorder [Unknown]
  - Irritable bowel syndrome [Unknown]
  - Pain in extremity [Unknown]
  - Fatigue [Unknown]
  - COVID-19 [Unknown]
  - Photosensitivity reaction [Unknown]
  - Sciatica [Unknown]
  - Musculoskeletal stiffness [Unknown]
  - Back pain [Unknown]
  - Dyspepsia [Unknown]
  - Pain in extremity [Unknown]
  - Blood lactate dehydrogenase increased [Unknown]
  - Rectal prolapse [Unknown]
  - Dysphagia [Unknown]
  - Hiatus hernia [Unknown]
  - Regurgitation [Unknown]
  - Oral disorder [Unknown]
  - Regurgitation [Unknown]
  - Pain [Unknown]
  - Vitamin B12 deficiency [Unknown]
  - Hiatus hernia [Unknown]
  - Photosensitivity reaction [Unknown]
  - Neutrophil count increased [Unknown]
  - Fatigue [Unknown]
  - Off label use [Unknown]

NARRATIVE: CASE EVENT DATE: 20170304
